FAERS Safety Report 25788201 (Version 1)
Quarter: 2025Q3

REPORT INFORMATION
  Report Type: Spontaneous
  Country: EU (occurrence: EU)
  Receive Date: 20250910
  Receipt Date: 20250910
  Transmission Date: 20251020
  Serious: Yes (Hospitalization, Other)
  Sender: ELI LILLY AND COMPANY
  Company Number: None

PATIENT
  Age: 63 Year
  Sex: Female
  Weight: 100 kg

DRUGS (2)
  1. TRULICITY [Suspect]
     Active Substance: DULAGLUTIDE
     Indication: Type 2 diabetes mellitus
     Dosage: 1,5 MG INJEKTIONSL?SUNG, FERTIGPEN, 1 X W?CHENTLICH
     Route: 058
     Dates: start: 20250523, end: 20250801
  2. TRULICITY [Suspect]
     Active Substance: DULAGLUTIDE
     Indication: Obesity

REACTIONS (7)
  - Nephrolithiasis [Recovered/Resolved]
  - Renal pain [Recovered/Resolved]
  - Dysphagia [Recovered/Resolved]
  - Middle insomnia [Recovered/Resolved]
  - Fatigue [Recovered/Resolved]
  - Flatulence [Recovered/Resolved]
  - Dyspepsia [Recovered/Resolved]

NARRATIVE: CASE EVENT DATE: 20250101
